FAERS Safety Report 6838150-2 (Version None)
Quarter: 2010Q3

REPORT INFORMATION
  Report Type: 
  Country: None (occurrence: None)
  Receive Date: 20100713
  Receipt Date: 20070531
  Transmission Date: 20110219
  Serious: No
  Sender: FDA-Public Use
  Company Number: US-PFIZER INC-2007046053

PATIENT
  Age: 52 Year
  Sex: Female

DRUGS (2)
  1. CHANTIX [Suspect]
     Indication: SMOKING CESSATION THERAPY
     Dates: start: 20070327
  2. MULTI-VITAMINS [Concomitant]

REACTIONS (6)
  - ABDOMINAL DISTENSION [None]
  - CONSTIPATION [None]
  - INSOMNIA [None]
  - NIGHTMARE [None]
  - SLEEP DISORDER [None]
  - WEIGHT INCREASED [None]
